FAERS Safety Report 24713711 (Version 1)
Quarter: 2024Q4

REPORT INFORMATION
  Report Type: Spontaneous
  Country: US (occurrence: US)
  Receive Date: 20241209
  Receipt Date: 20241209
  Transmission Date: 20250114
  Serious: No
  Sender: REGENERON
  Company Number: US-REGENERON PHARMACEUTICALS, INC.-2024-052287

PATIENT
  Sex: Female

DRUGS (1)
  1. EYLEA [Suspect]
     Active Substance: AFLIBERCEPT
     Indication: Neovascular age-related macular degeneration
     Dosage: UNK, Q2M IN LEFT EYE (FORMULATION: UNKNOWN)
     Dates: start: 2023, end: 202310

REACTIONS (7)
  - Visual field defect [Unknown]
  - Visual impairment [Unknown]
  - Asthenopia [Unknown]
  - Blood cholesterol increased [Unknown]
  - Vision blurred [Not Recovered/Not Resolved]
  - Vitreous floaters [Unknown]
  - Intentional dose omission [Unknown]

NARRATIVE: CASE EVENT DATE: 20230101
